FAERS Safety Report 4552178-7 (Version None)
Quarter: 2004Q4

REPORT INFORMATION
  Report Type: 
  Country: None (occurrence: None)
  Receive Date: 20041217
  Receipt Date: 20040924
  Transmission Date: 20050328
  Serious: No
  Sender: FDA-Public Use
  Company Number: 2004-BP-06107BP

PATIENT
  Age: 81 Year
  Sex: Female

DRUGS (5)
  1. SPIRIVA [Suspect]
     Indication: CHRONIC OBSTRUCTIVE AIRWAYS DISEASE
     Dosage: 18 MCG (18 MCG), IH
  2. SPIRIVA [Suspect]
  3. ADVAIR (SERETIDE MITE) [Concomitant]
  4. RHINOCORT [Concomitant]
  5. CLARITIN [Concomitant]

REACTIONS (2)
  - EPISTAXIS [None]
  - HAEMOPTYSIS [None]
